FAERS Safety Report 6621793-9 (Version None)
Quarter: 2010Q1

REPORT INFORMATION
  Report Type: 
  Country: None (occurrence: None)
  Receive Date: 20100309
  Receipt Date: 20100223
  Transmission Date: 20100710
  Serious: Yes (Other)
  Sender: FDA-Public Use
  Company Number: PHHY2010IT07819

PATIENT
  Sex: Female

DRUGS (7)
  1. CERTICAN [Suspect]
     Indication: RENAL TRANSPLANT
     Dosage: 0.75 MG, BID
     Route: 048
     Dates: start: 20091221, end: 20091228
  2. CERTICAN [Suspect]
     Indication: PROPHYLAXIS AGAINST TRANSPLANT REJECTION
  3. SANDIMMUNE [Concomitant]
     Dosage: 100 MG
  4. DELTACORTENE [Concomitant]
     Dosage: 2.5 MG EVERY OTHER DAY
     Route: 048
  5. ASPIRIN [Concomitant]
     Dosage: 1 POSOLOGIC UNIT
     Route: 048
  6. TRIATEC [Concomitant]
     Dosage: 2.5 MG
     Route: 048
  7. EUTIROX [Concomitant]
     Dosage: 50 MCG
     Route: 048

REACTIONS (1)
  - HYPERPYREXIA [None]
